FAERS Safety Report 19223927 (Version 1)
Quarter: 2021Q2

REPORT INFORMATION
  Report Type: Spontaneous
  Country: US (occurrence: US)
  Receive Date: 20210505
  Receipt Date: 20210505
  Transmission Date: 20210717
  Serious: No
  Sender: FDA-Public Use
  Company Number: US-ROCHE-2597896

PATIENT
  Sex: Male

DRUGS (11)
  1. ESBRIET [Suspect]
     Active Substance: PIRFENIDONE
     Dosage: TAKE 1 TABLETS BY MOUTH 3 TIMES A DAY
     Route: 048
     Dates: start: 20191115
  2. AMLODIPINE BESYLATE. [Concomitant]
     Active Substance: AMLODIPINE BESYLATE
  3. DIGOXIN. [Concomitant]
     Active Substance: DIGOXIN
  4. DUTASTERIDE. [Concomitant]
     Active Substance: DUTASTERIDE
  5. ESBRIET [Suspect]
     Active Substance: PIRFENIDONE
     Indication: TYPE IIA HYPERLIPIDAEMIA
     Dosage: TAKE 3 TABLETS BY MOUTH 3 TIMES A DAY WITH MEALS
     Route: 048
     Dates: start: 20191120
  6. CLOPIDOGREL BISULFATE. [Concomitant]
     Active Substance: CLOPIDOGREL BISULFATE
  7. METOPROLOL SUCCINATE ER [Concomitant]
     Active Substance: METOPROLOL SUCCINATE
  8. PANTOPRAZOLE SODIUM. [Concomitant]
     Active Substance: PANTOPRAZOLE SODIUM
  9. ATORVASTATIN CALCIUM. [Concomitant]
     Active Substance: ATORVASTATIN CALCIUM
  10. GABAPENTIN. [Concomitant]
     Active Substance: GABAPENTIN
  11. TRIAMTERENE AND HYDROCHLOROTHIAZIDE [Concomitant]
     Active Substance: HYDROCHLOROTHIAZIDE\TRIAMTERENE

REACTIONS (8)
  - Pulmonary mass [Not Recovered/Not Resolved]
  - Haematospermia [Not Recovered/Not Resolved]
  - Urticaria [Not Recovered/Not Resolved]
  - Off label use [Unknown]
  - Back pain [Not Recovered/Not Resolved]
  - Intentional product use issue [Unknown]
  - Urine flow decreased [Not Recovered/Not Resolved]
  - Decreased appetite [Unknown]
